FAERS Safety Report 14929698 (Version 2)
Quarter: 2018Q2

REPORT INFORMATION
  Report Type: Spontaneous
  Country: BR (occurrence: BR)
  Receive Date: 20180523
  Receipt Date: 20180627
  Transmission Date: 20180711
  Serious: Yes (Life-Threatening)
  Sender: FDA-Public Use
  Company Number: BR-BIOMARINAP-BR-2018-118373

PATIENT
  Age: 7 Year
  Sex: Male

DRUGS (1)
  1. VIMIZIM [Suspect]
     Active Substance: ELOSULFASE ALFA
     Indication: MUCOPOLYSACCHARIDOSIS IV
     Dosage: UNK
     Route: 042
     Dates: start: 20141226

REACTIONS (7)
  - Oxygen saturation decreased [Recovered/Resolved]
  - Irritability [Unknown]
  - Secretion discharge [Unknown]
  - Dyspnoea [Recovered/Resolved]
  - Dysphagia [Unknown]
  - Erythema [Recovered/Resolved]
  - Mouth swelling [Recovered/Resolved]

NARRATIVE: CASE EVENT DATE: 20180516
